FAERS Safety Report 14955441 (Version 1)
Quarter: 2018Q2

REPORT INFORMATION
  Report Type: Report from Study
  Country: BR (occurrence: BR)
  Receive Date: 20180531
  Receipt Date: 20180531
  Transmission Date: 20180711
  Serious: Yes (Hospitalization, Other)
  Sender: FDA-Public Use
  Company Number: BR-ROCHE-1849501

PATIENT
  Sex: Female
  Weight: 69 kg

DRUGS (9)
  1. ALENIA (BRAZIL) [Concomitant]
     Active Substance: BUDESONIDE\FORMOTEROL FUMARATE
     Indication: ASTHMA
     Dosage: 2 DF (INHALATION), QN (MORE THAN 20 YEARS)
     Route: 055
  2. XOLAIR [Suspect]
     Active Substance: OMALIZUMAB
     Indication: ASTHMA
     Dosage: 2 DF, QMO
     Route: 042
  3. XOLAIR [Suspect]
     Active Substance: OMALIZUMAB
     Dosage: 300 MG, QMO
     Route: 058
  4. ALENIA (BRAZIL) [Concomitant]
     Active Substance: BUDESONIDE\FORMOTEROL FUMARATE
     Dosage: 2 OR 3 TIMES DAILY
     Route: 065
  5. GLIFAGE [Concomitant]
     Active Substance: METFORMIN HYDROCHLORIDE
     Indication: DIABETES MELLITUS
     Dosage: 1 DF, QD (SINCE 2 YEARS)
     Route: 048
  6. XOLAIR [Suspect]
     Active Substance: OMALIZUMAB
     Route: 058
     Dates: start: 20180501
  7. CORTISONE [Suspect]
     Active Substance: CORTISONE\HYDROCORTISONE
     Indication: PRODUCT USED FOR UNKNOWN INDICATION
     Route: 065
  8. SINGULAIR [Concomitant]
     Active Substance: MONTELUKAST SODIUM
     Indication: BRONCHITIS
     Dosage: 1 DF, QD (MORE THAN 20 YEARS)
     Route: 048
  9. HIGROTON [Concomitant]
     Active Substance: CHLORTHALIDONE
     Indication: HYPERTHYROIDISM
     Dosage: 1 DF, QD (SINCE 2 YEARS)
     Route: 048

REACTIONS (7)
  - Asthma [Unknown]
  - Weight increased [Unknown]
  - Asthmatic crisis [Not Recovered/Not Resolved]
  - Influenza [Recovered/Resolved]
  - Sinusitis [Unknown]
  - Incorrect route of drug administration [Unknown]
  - Malaise [Unknown]
